FAERS Safety Report 6911975-0 (Version None)
Quarter: 2010Q3

REPORT INFORMATION
  Report Type: 
  Country: None (occurrence: None)
  Receive Date: 20100806
  Receipt Date: 20071117
  Transmission Date: 20110219
  Serious: No
  Sender: FDA-Public Use
  Company Number: US-PFIZER INC-2005146692

PATIENT
  Sex: Male
  Weight: 84.37 kg

DRUGS (2)
  1. DETROL LA [Suspect]
     Indication: HYPERTONIC BLADDER
     Route: 048
     Dates: start: 20051001
  2. WARFARIN SODIUM [Concomitant]
     Route: 048

REACTIONS (1)
  - DRUG EFFECT DECREASED [None]
